FAERS Safety Report 6176930-X (Version None)
Quarter: 2009Q2

REPORT INFORMATION
  Report Type: 
  Country: None (occurrence: None)
  Receive Date: 20090501
  Receipt Date: 20090109
  Transmission Date: 20091009
  Serious: Yes (Hospitalization)
  Sender: FDA-Public Use
  Company Number: US-ALEXION-A200900004

PATIENT
  Sex: Male

DRUGS (2)
  1. SOLIRIS [Suspect]
     Indication: PAROXYSMAL NOCTURNAL HAEMOGLOBINURIA
     Dosage: 600 MG, SINGLE
     Route: 042
     Dates: start: 20081211, end: 20081211
  2. SOLIRIS [Suspect]
     Dosage: UNK
     Route: 042
     Dates: start: 20081231, end: 20081231

REACTIONS (1)
  - RENAL IMPAIRMENT [None]
